FAERS Safety Report 4549909-9 (Version None)
Quarter: 2004Q4

REPORT INFORMATION
  Report Type: 
  Country: None (occurrence: None)
  Receive Date: 20041230
  Receipt Date: 20040429
  Transmission Date: 20050328
  Serious: Yes (Death)
  Sender: FDA-Public Use
  Company Number: 04-05-0644

PATIENT
  Age: 67 Year
  Sex: Male

DRUGS (10)
  1. CLOZAPINE [Suspect]
     Indication: HALLUCINATION
     Dosage: 37.5MG  HS ORAL
     Route: 048
     Dates: start: 20010101, end: 20040301
  2. CLOZAPINE [Suspect]
     Indication: PARKINSON'S DISEASE
     Dosage: 37.5MG  HS ORAL
     Route: 048
     Dates: start: 20010101, end: 20040301
  3. SINEMET [Concomitant]
  4. LESCOL [Concomitant]
  5. ZOLOFT [Concomitant]
  6. LABETALOL [Concomitant]
  7. PRILOSEC [Concomitant]
  8. IMDUR [Concomitant]
  9. LASIX [Concomitant]
  10. FLOMAX [Concomitant]

REACTIONS (1)
  - UNEVALUABLE EVENT [None]
